FAERS Safety Report 15344621 (Version 3)
Quarter: 2018Q3

REPORT INFORMATION
  Report Type: Spontaneous
  Country: US (occurrence: US)
  Receive Date: 20180903
  Receipt Date: 20180919
  Transmission Date: 20181010
  Serious: Yes (Hospitalization)
  Sender: FDA-Public Use
  Company Number: US-SA-2018SA244808

PATIENT
  Age: 94 Year
  Sex: Female

DRUGS (1)
  1. LANTUS [Suspect]
     Active Substance: INSULIN GLARGINE
     Indication: DIABETES MELLITUS
     Dosage: 21 U, QD
     Route: 058

REACTIONS (5)
  - Blood glucose increased [Recovered/Resolved]
  - Blood pressure abnormal [Recovered/Resolved]
  - Device operational issue [Unknown]
  - Hospitalisation [Unknown]
  - Incorrect dose administered by device [Unknown]
